FAERS Safety Report 13814501 (Version 1)
Quarter: 2017Q3

REPORT INFORMATION
  Report Type: Spontaneous
  Country: US (occurrence: US)
  Receive Date: 20170731
  Receipt Date: 20170731
  Transmission Date: 20171127
  Serious: Yes (Other)
  Sender: FDA-Public Use
  Company Number: US-NAPPMUNDI-USA-2017-0138421

PATIENT
  Age: 62 Year
  Sex: Female

DRUGS (5)
  1. BUTRANS [Suspect]
     Active Substance: BUPRENORPHINE
     Indication: OSTEOARTHRITIS
     Dosage: 15 MCG/HR, WEEKLY
     Route: 062
     Dates: start: 2017, end: 201702
  2. BUTRANS [Suspect]
     Active Substance: BUPRENORPHINE
     Dosage: 5 MCG/HR, WEEKLY
     Route: 062
     Dates: start: 2016, end: 2016
  3. BUTRANS [Suspect]
     Active Substance: BUPRENORPHINE
     Indication: BACK PAIN
     Dosage: 20 MCG/HR, WEEKLY
     Route: 062
     Dates: start: 201703
  4. BUTRANS [Suspect]
     Active Substance: BUPRENORPHINE
     Dosage: 7.5 MCG/HR, WEEKLY
     Route: 062
     Dates: start: 2016, end: 2016
  5. BUTRANS [Suspect]
     Active Substance: BUPRENORPHINE
     Dosage: 10 MCG/HR, WEEKLY
     Route: 062
     Dates: start: 2016, end: 2017

REACTIONS (11)
  - Application site erythema [Recovering/Resolving]
  - Application site rash [Recovering/Resolving]
  - Nausea [Not Recovered/Not Resolved]
  - Product leakage [Unknown]
  - Application site pain [Recovering/Resolving]
  - Cardiac failure congestive [Not Recovered/Not Resolved]
  - Application site pruritus [Recovering/Resolving]
  - Application site vesicles [Recovering/Resolving]
  - Somnolence [Not Recovered/Not Resolved]
  - Inadequate analgesia [Recovered/Resolved]
  - Rheumatoid arthritis [Not Recovered/Not Resolved]

NARRATIVE: CASE EVENT DATE: 2016
